FAERS Safety Report 4342034-1 (Version None)
Quarter: 2004Q2

REPORT INFORMATION
  Report Type: 
  Country: None (occurrence: None)
  Receive Date: 20040415
  Receipt Date: 20040402
  Transmission Date: 20050107
  Serious: Yes (Other)
  Sender: FDA-Public Use
  Company Number: 2004022549

PATIENT
  Age: 35 Year
  Sex: Female

DRUGS (4)
  1. ZITHROMAX [Suspect]
     Indication: ILL-DEFINED DISORDER
     Dates: start: 20040101
  2. LORATADINE [Concomitant]
     Indication: ILL-DEFINED DISORDER
     Dates: start: 20040222, end: 20040305
  3. MOMETASONE FUROATE [Concomitant]
  4. MULTIVITAMINS (ASCORBIC ACID,ERGOCALCIFEROL,FOLIC ACID,NICOTINAMIDE,PA [Concomitant]

REACTIONS (4)
  - CHEST DISCOMFORT [None]
  - HEADACHE [None]
  - HEART RATE INCREASED [None]
  - RESPIRATORY ARREST [None]
